FAERS Safety Report 17033313 (Version 2)
Quarter: 2020Q1

REPORT INFORMATION
  Report Type: Spontaneous
  Country: US (occurrence: US)
  Receive Date: 20191114
  Receipt Date: 20200109
  Transmission Date: 20200409
  Serious: No
  Sender: FDA-Public Use
  Company Number: US-SA-2019SA315983

PATIENT
  Age: 43 Year
  Sex: Female

DRUGS (1)
  1. DUPIXENT [Suspect]
     Active Substance: DUPILUMAB
     Indication: DERMATITIS ATOPIC
     Dosage: 300 MG, QOW
     Route: 058
     Dates: start: 20190919

REACTIONS (11)
  - Injection site rash [Unknown]
  - Sinusitis [Unknown]
  - Injection site pain [Unknown]
  - Dermatitis [Unknown]
  - Lichen sclerosus [Unknown]
  - Pruritus genital [Unknown]
  - Injection site pruritus [Unknown]
  - Genital pain [Unknown]
  - Injection site discolouration [Unknown]
  - Condition aggravated [Unknown]
  - Skin irritation [Unknown]

NARRATIVE: CASE EVENT DATE: 2019
